FAERS Safety Report 12322658 (Version 1)
Quarter: 2016Q2

REPORT INFORMATION
  Report Type: Spontaneous
  Country: US (occurrence: None)
  Receive Date: 20160429
  Receipt Date: 20160429
  Transmission Date: 20160815
  Serious: Yes (Hospitalization)
  Sender: FDA-Public Use
  Company Number: None

PATIENT
  Age: 65 Year
  Sex: Male
  Weight: 99.1 kg

DRUGS (3)
  1. DEXAMETHASONE. [Suspect]
     Active Substance: DEXAMETHASONE
     Dates: end: 20160415
  2. VELCADE [Suspect]
     Active Substance: BORTEZOMIB
     Dates: end: 20160414
  3. LENALIDOMIDE (CC-5013) [Suspect]
     Active Substance: LENALIDOMIDE
     Dates: end: 20160417

REACTIONS (4)
  - Nausea [None]
  - Asthenia [None]
  - Fall [None]
  - Hypophagia [None]

NARRATIVE: CASE EVENT DATE: 20160425
